FAERS Safety Report 11805861 (Version 2)
Quarter: 2016Q1

REPORT INFORMATION
  Report Type: Spontaneous
  Country: US (occurrence: US)
  Receive Date: 20151207
  Receipt Date: 20160105
  Transmission Date: 20160525
  Serious: Yes (Death)
  Sender: FDA-Public Use
  Company Number: US-PFIZER INC-2015239524

PATIENT
  Age: 17 Year
  Sex: Male
  Weight: 70 kg

DRUGS (4)
  1. LORAZEPAM. [Concomitant]
     Active Substance: LORAZEPAM
     Indication: ANXIETY
     Dosage: UNK, AS NEEDED
  2. ZANTAC [Concomitant]
     Active Substance: RANITIDINE HYDROCHLORIDE
     Indication: ABDOMINAL DISCOMFORT
     Dosage: 150 MG, 2X/DAY
  3. IBRANCE [Suspect]
     Active Substance: PALBOCICLIB
     Indication: GLIOBLASTOMA MULTIFORME
     Dosage: 125 MG, CYCLIC (ONCE A DAY FOR 21 DAYS, EVERY 28 DAYS)
     Route: 048
     Dates: start: 20150722, end: 20151106
  4. SENNA [Concomitant]
     Active Substance: SENNA LEAF\SENNOSIDES\SENNOSIDES A AND B
     Indication: CONSTIPATION
     Dosage: UNK, AS NEEDED

REACTIONS (4)
  - Fatigue [Unknown]
  - Disease progression [Fatal]
  - Product use issue [Unknown]
  - Glioblastoma multiforme [Fatal]
